FAERS Safety Report 16309120 (Version 1)
Quarter: 2019Q2

REPORT INFORMATION
  Report Type: Spontaneous
  Country: US (occurrence: US)
  Receive Date: 20190514
  Receipt Date: 20190514
  Transmission Date: 20190711
  Serious: Yes (Other)
  Sender: FDA-Public Use
  Company Number: US-BAYER-2019-093902

PATIENT
  Age: 75 Year
  Sex: Male

DRUGS (14)
  1. GABAPENTIN. [Concomitant]
     Active Substance: GABAPENTIN
  2. PARACETAMOL [Concomitant]
     Active Substance: ACETAMINOPHEN
  3. WARFARIN [Interacting]
     Active Substance: WARFARIN
  4. ATORVASTATIN [Suspect]
     Active Substance: ATORVASTATIN
  5. GLIPIZIDE. [Suspect]
     Active Substance: GLIPIZIDE
  6. LORATADINE. [Suspect]
     Active Substance: LORATADINE
  7. ACETYLSALICYLIC ACID (CARDIO) [Suspect]
     Active Substance: ASPIRIN
  8. ACETAMINOPHEN. [Concomitant]
     Active Substance: ACETAMINOPHEN
  9. METOPROLOL. [Suspect]
     Active Substance: METOPROLOL
  10. LOSARTAN. [Concomitant]
     Active Substance: LOSARTAN
  11. PIRFENIDONE. [Concomitant]
     Active Substance: PIRFENIDONE
     Dosage: 801 MG, TID
  12. ESCITALOPRAM [Suspect]
     Active Substance: ESCITALOPRAM OXALATE
  13. OMEPRAZOLE. [Concomitant]
     Active Substance: OMEPRAZOLE
  14. MULTIVITAMINS [VITAMINS NOS] [Concomitant]
     Active Substance: VITAMINS

REACTIONS (3)
  - Haemoptysis [None]
  - Pulmonary alveolar haemorrhage [None]
  - Labelled drug-drug interaction medication error [None]
